FAERS Safety Report 24823604 (Version 17)
Quarter: 2025Q3

REPORT INFORMATION
  Report Type: Spontaneous
  Country: CA (occurrence: CA)
  Receive Date: 20250109
  Receipt Date: 20250812
  Transmission Date: 20251021
  Serious: Yes (Congenital Anomaly)
  Sender: CELLTRION
  Company Number: CA-SANDOZ-SDZ2024CA105090

PATIENT

DRUGS (230)
  1. INFLIXIMAB [Suspect]
     Active Substance: INFLIXIMAB
     Indication: Foetal exposure during pregnancy
  2. INFLIXIMAB [Suspect]
     Active Substance: INFLIXIMAB
  3. ENBREL [Suspect]
     Active Substance: ETANERCEPT
     Indication: Foetal exposure during pregnancy
     Route: 064
  4. ENBREL [Suspect]
     Active Substance: ETANERCEPT
     Dosage: 50 MG, WEEKLY
     Route: 064
  5. ADALIMUMAB [Suspect]
     Active Substance: ADALIMUMAB
     Indication: Foetal exposure during pregnancy
  6. ADALIMUMAB [Suspect]
     Active Substance: ADALIMUMAB
  7. RITUXIMAB [Suspect]
     Active Substance: RITUXIMAB
     Indication: Foetal exposure during pregnancy
  8. RITUXIMAB [Suspect]
     Active Substance: RITUXIMAB
  9. RITUXIMAB [Suspect]
     Active Substance: RITUXIMAB
  10. RITUXIMAB [Suspect]
     Active Substance: RITUXIMAB
  11. HYDROCORTISONE [Suspect]
     Active Substance: HYDROCORTISONE
     Indication: Foetal exposure during pregnancy
  12. METHYLPREDNISOLONE [Suspect]
     Active Substance: METHYLPREDNISOLONE
     Indication: Foetal exposure during pregnancy
  13. METHYLPREDNISOLONE SODIUM SUCCINATE [Suspect]
     Active Substance: METHYLPREDNISOLONE SODIUM SUCCINATE
     Indication: Foetal exposure during pregnancy
     Route: 064
  14. SULFASALAZINE [Suspect]
     Active Substance: SULFASALAZINE
     Indication: Foetal exposure during pregnancy
     Route: 064
  15. XELJANZ [Suspect]
     Active Substance: TOFACITINIB CITRATE
     Indication: Foetal exposure during pregnancy
  16. AIMOVIG [Suspect]
     Active Substance: ERENUMAB-AOOE
     Indication: Foetal exposure during pregnancy
  17. AIMOVIG [Suspect]
     Active Substance: ERENUMAB-AOOE
  18. ALENDRONIC ACID [Suspect]
     Active Substance: ALENDRONIC ACID
     Indication: Foetal exposure during pregnancy
  19. ALENDRONIC ACID [Suspect]
     Active Substance: ALENDRONIC ACID
  20. CANDESARTAN [Suspect]
     Active Substance: CANDESARTAN
     Indication: Foetal exposure during pregnancy
  21. CANDESARTAN [Suspect]
     Active Substance: CANDESARTAN
  22. DICLOFENAC [Suspect]
     Active Substance: DICLOFENAC
     Indication: Foetal exposure during pregnancy
  23. DICLOFENAC [Suspect]
     Active Substance: DICLOFENAC
  24. DICLOFENAC POTASSIUM [Suspect]
     Active Substance: DICLOFENAC POTASSIUM
     Indication: Foetal exposure during pregnancy
  25. DICLOFENAC POTASSIUM [Suspect]
     Active Substance: DICLOFENAC POTASSIUM
  26. DICLOFENAC POTASSIUM [Suspect]
     Active Substance: DICLOFENAC POTASSIUM
  27. DICLOFENAC SODIUM [Suspect]
     Active Substance: DICLOFENAC SODIUM
  28. DICLOFENAC SODIUM [Suspect]
     Active Substance: DICLOFENAC SODIUM
  29. LEFLUNOMIDE [Suspect]
     Active Substance: LEFLUNOMIDE
     Indication: Foetal exposure during pregnancy
  30. LEFLUNOMIDE [Suspect]
     Active Substance: LEFLUNOMIDE
  31. METFORMIN [Suspect]
     Active Substance: METFORMIN HYDROCHLORIDE
     Indication: Foetal exposure during pregnancy
  32. METFORMIN [Suspect]
     Active Substance: METFORMIN HYDROCHLORIDE
  33. OXYCODONE [Suspect]
     Active Substance: OXYCODONE
     Indication: Foetal exposure during pregnancy
  34. OXYCODONE [Suspect]
     Active Substance: OXYCODONE
  35. COSENTYX [Suspect]
     Active Substance: SECUKINUMAB
     Indication: Foetal exposure during pregnancy
  36. COSENTYX [Suspect]
     Active Substance: SECUKINUMAB
  37. MAGNESIUM CITRATE [Suspect]
     Active Substance: MAGNESIUM CITRATE
     Indication: Foetal exposure during pregnancy
  38. MAGNESIUM CITRATE [Suspect]
     Active Substance: MAGNESIUM CITRATE
  39. ATOMOXETINE [Suspect]
     Active Substance: ATOMOXETINE
     Indication: Foetal exposure during pregnancy
  40. ATOMOXETINE [Suspect]
     Active Substance: ATOMOXETINE
  41. CHOLECALCIFEROL [Suspect]
     Active Substance: CHOLECALCIFEROL
     Indication: Foetal exposure during pregnancy
  42. CHOLECALCIFEROL [Suspect]
     Active Substance: CHOLECALCIFEROL
  43. ERGOCALCIFEROL [Suspect]
     Active Substance: ERGOCALCIFEROL
     Indication: Foetal exposure during pregnancy
  44. ERGOCALCIFEROL [Suspect]
     Active Substance: ERGOCALCIFEROL
  45. HYDROCORTISONE PROBUTATE [Suspect]
     Active Substance: HYDROCORTISONE PROBUTATE
     Indication: Foetal exposure during pregnancy
  46. HYDROCORTISONE PROBUTATE [Suspect]
     Active Substance: HYDROCORTISONE PROBUTATE
  47. PHENYLEPHRINE HYDROCHLORIDE [Suspect]
     Active Substance: PHENYLEPHRINE HYDROCHLORIDE
     Indication: Foetal exposure during pregnancy
  48. PHENYLEPHRINE HYDROCHLORIDE [Suspect]
     Active Substance: PHENYLEPHRINE HYDROCHLORIDE
  49. VITAMIN C [Suspect]
     Active Substance: ASCORBIC ACID
     Indication: Foetal exposure during pregnancy
  50. VITAMIN C [Suspect]
     Active Substance: ASCORBIC ACID
  51. METHOTREXATE SODIUM [Suspect]
     Active Substance: METHOTREXATE SODIUM
     Indication: Foetal exposure during pregnancy
  52. METHOTREXATE SODIUM [Suspect]
     Active Substance: METHOTREXATE SODIUM
  53. IMURAN [Suspect]
     Active Substance: AZATHIOPRINE
     Indication: Foetal exposure during pregnancy
  54. IMURAN [Suspect]
     Active Substance: AZATHIOPRINE
  55. IMURAN [Suspect]
     Active Substance: AZATHIOPRINE
  56. IMURAN [Suspect]
     Active Substance: AZATHIOPRINE
  57. ACETAMINOPHEN [Suspect]
     Active Substance: ACETAMINOPHEN
     Indication: Foetal exposure during pregnancy
  58. ACETAMINOPHEN [Suspect]
     Active Substance: ACETAMINOPHEN
  59. ACETAMINOPHEN [Suspect]
     Active Substance: ACETAMINOPHEN
  60. ACETAMINOPHEN [Suspect]
     Active Substance: ACETAMINOPHEN
     Route: 064
  61. ACETAMINOPHEN [Suspect]
     Active Substance: ACETAMINOPHEN
  62. ACETAMINOPHEN [Suspect]
     Active Substance: ACETAMINOPHEN
  63. ACETAMINOPHEN [Suspect]
     Active Substance: ACETAMINOPHEN
  64. ACETAMINOPHEN [Suspect]
     Active Substance: ACETAMINOPHEN
  65. ACETAMINOPHEN [Suspect]
     Active Substance: ACETAMINOPHEN
  66. ACETAMINOPHEN\CODEINE PHOSPHATE [Suspect]
     Active Substance: ACETAMINOPHEN\CODEINE PHOSPHATE
     Indication: Foetal exposure during pregnancy
  67. ACETAMINOPHEN\CODEINE PHOSPHATE [Suspect]
     Active Substance: ACETAMINOPHEN\CODEINE PHOSPHATE
  68. ACTEMRA [Suspect]
     Active Substance: TOCILIZUMAB
     Indication: Foetal exposure during pregnancy
  69. ACTEMRA [Suspect]
     Active Substance: TOCILIZUMAB
  70. LEFLUNOMIDE [Suspect]
     Active Substance: LEFLUNOMIDE
     Indication: Foetal exposure during pregnancy
  71. LEFLUNOMIDE [Suspect]
     Active Substance: LEFLUNOMIDE
  72. LEFLUNOMIDE [Suspect]
     Active Substance: LEFLUNOMIDE
  73. LEFLUNOMIDE [Suspect]
     Active Substance: LEFLUNOMIDE
  74. PREDNISONE [Suspect]
     Active Substance: PREDNISONE
     Indication: Foetal exposure during pregnancy
  75. PREDNISONE [Suspect]
     Active Substance: PREDNISONE
  76. ARAVA [Suspect]
     Active Substance: LEFLUNOMIDE
     Indication: Foetal exposure during pregnancy
  77. ARAVA [Suspect]
     Active Substance: LEFLUNOMIDE
  78. BERINERT [Suspect]
     Active Substance: HUMAN C1-ESTERASE INHIBITOR
     Indication: Foetal exposure during pregnancy
  79. BERINERT [Suspect]
     Active Substance: HUMAN C1-ESTERASE INHIBITOR
  80. BERINERT [Suspect]
     Active Substance: HUMAN C1-ESTERASE INHIBITOR
  81. BERINERT [Suspect]
     Active Substance: HUMAN C1-ESTERASE INHIBITOR
  82. BOTULINUM TOXIN TYPE A [Suspect]
     Active Substance: BOTULINUM TOXIN TYPE A
     Indication: Foetal exposure during pregnancy
  83. BOTULINUM TOXIN TYPE A [Suspect]
     Active Substance: BOTULINUM TOXIN TYPE A
  84. BUTRANS [Suspect]
     Active Substance: BUPRENORPHINE
     Indication: Foetal exposure during pregnancy
  85. BUTRANS [Suspect]
     Active Substance: BUPRENORPHINE
  86. CALCIUM ASCORBATE [Suspect]
     Active Substance: CALCIUM ASCORBATE
     Indication: Foetal exposure during pregnancy
  87. CALCIUM ASCORBATE [Suspect]
     Active Substance: CALCIUM ASCORBATE
  88. CALCIUM CITRATE [Suspect]
     Active Substance: CALCIUM CITRATE
     Indication: Foetal exposure during pregnancy
  89. CALCIUM CITRATE [Suspect]
     Active Substance: CALCIUM CITRATE
  90. CALCIUM GLUBIONATE [Suspect]
     Active Substance: CALCIUM GLUBIONATE
     Indication: Foetal exposure during pregnancy
  91. CALCIUM GLUBIONATE [Suspect]
     Active Substance: CALCIUM GLUBIONATE
  92. CELEBREX [Suspect]
     Active Substance: CELECOXIB
     Indication: Foetal exposure during pregnancy
  93. CELEBREX [Suspect]
     Active Substance: CELECOXIB
  94. CETIRIZINE [Suspect]
     Active Substance: CETIRIZINE HYDROCHLORIDE
     Indication: Foetal exposure during pregnancy
  95. CETIRIZINE [Suspect]
     Active Substance: CETIRIZINE HYDROCHLORIDE
  96. CHLORHEXIDINE GLUCONATE [Suspect]
     Active Substance: CHLORHEXIDINE GLUCONATE
     Indication: Foetal exposure during pregnancy
  97. CHLORHEXIDINE GLUCONATE [Suspect]
     Active Substance: CHLORHEXIDINE GLUCONATE
  98. CIMZIA [Suspect]
     Active Substance: CERTOLIZUMAB PEGOL
     Indication: Foetal exposure during pregnancy
  99. CIMZIA [Suspect]
     Active Substance: CERTOLIZUMAB PEGOL
  100. CORTISONE ACETATE [Suspect]
     Active Substance: CORTISONE ACETATE
     Indication: Foetal exposure during pregnancy
  101. CORTISONE ACETATE [Suspect]
     Active Substance: CORTISONE ACETATE
  102. DESOXIMETASONE [Suspect]
     Active Substance: DESOXIMETASONE
     Indication: Foetal exposure during pregnancy
  103. DESOXIMETASONE [Suspect]
     Active Substance: DESOXIMETASONE
  104. DOMPERIDONE MALEATE [Suspect]
     Active Substance: DOMPERIDONE MALEATE
     Indication: Foetal exposure during pregnancy
  105. DOMPERIDONE MALEATE [Suspect]
     Active Substance: DOMPERIDONE MALEATE
  106. FLUMETHASONE [Suspect]
     Active Substance: FLUMETHASONE
     Indication: Foetal exposure during pregnancy
  107. FLUMETHASONE [Suspect]
     Active Substance: FLUMETHASONE
  108. FLUMETHASONE PIVALATE [Suspect]
     Active Substance: FLUMETHASONE PIVALATE
     Indication: Foetal exposure during pregnancy
  109. FLUMETHASONE PIVALATE [Suspect]
     Active Substance: FLUMETHASONE PIVALATE
  110. FOLIC ACID [Suspect]
     Active Substance: FOLIC ACID
     Indication: Foetal exposure during pregnancy
  111. FOLIC ACID [Suspect]
     Active Substance: FOLIC ACID
  112. FOSAMAX [Suspect]
     Active Substance: ALENDRONATE SODIUM
     Indication: Foetal exposure during pregnancy
  113. FOSAMAX [Suspect]
     Active Substance: ALENDRONATE SODIUM
  114. HAIR KERATIN AMINO ACIDS GOLD COMPLEX [Suspect]
     Active Substance: HAIR KERATIN AMINO ACIDS GOLD COMPLEX
     Indication: Foetal exposure during pregnancy
  115. HAIR KERATIN AMINO ACIDS GOLD COMPLEX [Suspect]
     Active Substance: HAIR KERATIN AMINO ACIDS GOLD COMPLEX
  116. GOLD SODIUM THIOMALATE [Suspect]
     Active Substance: GOLD SODIUM THIOMALATE
     Indication: Foetal exposure during pregnancy
  117. GOLD SODIUM THIOMALATE [Suspect]
     Active Substance: GOLD SODIUM THIOMALATE
  118. HUMIRA [Suspect]
     Active Substance: ADALIMUMAB
     Indication: Foetal exposure during pregnancy
  119. HUMIRA [Suspect]
     Active Substance: ADALIMUMAB
  120. HYDROXYCHLOROQUINE [Suspect]
     Active Substance: HYDROXYCHLOROQUINE
     Indication: Foetal exposure during pregnancy
  121. HYDROXYCHLOROQUINE [Suspect]
     Active Substance: HYDROXYCHLOROQUINE
  122. HYDROXYCHLOROQUINE SULFATE [Suspect]
     Active Substance: HYDROXYCHLOROQUINE SULFATE
     Indication: Foetal exposure during pregnancy
  123. HYDROXYCHLOROQUINE SULFATE [Suspect]
     Active Substance: HYDROXYCHLOROQUINE SULFATE
  124. ISOPROPYL ALCOHOL [Suspect]
     Active Substance: ISOPROPYL ALCOHOL
     Indication: Foetal exposure during pregnancy
  125. ISOPROPYL ALCOHOL [Suspect]
     Active Substance: ISOPROPYL ALCOHOL
  126. LAMICTAL [Suspect]
     Active Substance: LAMOTRIGINE
     Indication: Foetal exposure during pregnancy
  127. LAMICTAL [Suspect]
     Active Substance: LAMOTRIGINE
  128. MINOCYCLINE [Suspect]
     Active Substance: MINOCYCLINE HYDROCHLORIDE
     Indication: Foetal exposure during pregnancy
  129. MINOCYCLINE [Suspect]
     Active Substance: MINOCYCLINE HYDROCHLORIDE
  130. MINOCYCLINE HYDROCHLORIDE [Suspect]
     Active Substance: MINOCYCLINE HYDROCHLORIDE
     Indication: Foetal exposure during pregnancy
  131. MINOCYCLINE HYDROCHLORIDE [Suspect]
     Active Substance: MINOCYCLINE HYDROCHLORIDE
  132. MYOCHRYSINE [Suspect]
     Active Substance: GOLD SODIUM THIOMALATE
     Indication: Foetal exposure during pregnancy
  133. MYOCHRYSINE [Suspect]
     Active Substance: GOLD SODIUM THIOMALATE
  134. MYRBETRIQ [Suspect]
     Active Substance: MIRABEGRON
     Indication: Foetal exposure during pregnancy
  135. MYRBETRIQ [Suspect]
     Active Substance: MIRABEGRON
  136. NAPROXEN [Suspect]
     Active Substance: NAPROXEN
     Indication: Foetal exposure during pregnancy
  137. NAPROXEN [Suspect]
     Active Substance: NAPROXEN
  138. NAPROXEN SODIUM [Suspect]
     Active Substance: NAPROXEN SODIUM
     Indication: Foetal exposure during pregnancy
  139. NAPROXEN SODIUM [Suspect]
     Active Substance: NAPROXEN SODIUM
  140. NICOTINAMIDE [Suspect]
     Active Substance: NIACINAMIDE
     Indication: Foetal exposure during pregnancy
  141. NICOTINAMIDE [Suspect]
     Active Substance: NIACINAMIDE
  142. NUCALA [Suspect]
     Active Substance: MEPOLIZUMAB
     Indication: Foetal exposure during pregnancy
  143. NUCALA [Suspect]
     Active Substance: MEPOLIZUMAB
  144. ORENCIA [Suspect]
     Active Substance: ABATACEPT
     Indication: Foetal exposure during pregnancy
  145. ORENCIA [Suspect]
     Active Substance: ABATACEPT
  146. OXYCODONE TEREPHTHALATE [Suspect]
     Active Substance: OXYCODONE TEREPHTHALATE
     Indication: Foetal exposure during pregnancy
  147. OXYCODONE TEREPHTHALATE [Suspect]
     Active Substance: OXYCODONE TEREPHTHALATE
  148. PERIOGARD [Suspect]
     Active Substance: CHLORHEXIDINE GLUCONATE
     Indication: Foetal exposure during pregnancy
  149. PERIOGARD [Suspect]
     Active Substance: CHLORHEXIDINE GLUCONATE
  150. PHTHALYLSULFATHIAZOLE [Suspect]
     Active Substance: PHTHALYLSULFATHIAZOLE
     Indication: Foetal exposure during pregnancy
  151. PHTHALYLSULFATHIAZOLE [Suspect]
     Active Substance: PHTHALYLSULFATHIAZOLE
  152. PREDNISONE [Suspect]
     Active Substance: PREDNISONE
     Indication: Foetal exposure during pregnancy
  153. PREDNISONE [Suspect]
     Active Substance: PREDNISONE
  154. PSEUDOEPHEDRINE [Suspect]
     Active Substance: PSEUDOEPHEDRINE
     Indication: Foetal exposure during pregnancy
  155. PSEUDOEPHEDRINE [Suspect]
     Active Substance: PSEUDOEPHEDRINE
  156. RAMIPRIL [Suspect]
     Active Substance: RAMIPRIL
     Indication: Foetal exposure during pregnancy
  157. RAMIPRIL [Suspect]
     Active Substance: RAMIPRIL
  158. CETIRIZINE HYDROCHLORIDE\PSEUDOEPHEDRINE HYDROCHLORIDE [Suspect]
     Active Substance: CETIRIZINE HYDROCHLORIDE\PSEUDOEPHEDRINE HYDROCHLORIDE
     Indication: Foetal exposure during pregnancy
  159. CETIRIZINE HYDROCHLORIDE\PSEUDOEPHEDRINE HYDROCHLORIDE [Suspect]
     Active Substance: CETIRIZINE HYDROCHLORIDE\PSEUDOEPHEDRINE HYDROCHLORIDE
  160. SIMPONI [Suspect]
     Active Substance: GOLIMUMAB
     Indication: Foetal exposure during pregnancy
  161. SIMPONI [Suspect]
     Active Substance: GOLIMUMAB
  162. TOPIRAMATE [Suspect]
     Active Substance: TOPIRAMATE
     Indication: Foetal exposure during pregnancy
  163. TOPIRAMATE [Suspect]
     Active Substance: TOPIRAMATE
  164. ZINC [Suspect]
     Active Substance: ZINC
     Indication: Foetal exposure during pregnancy
  165. ZINC [Suspect]
     Active Substance: ZINC
  166. PANADOL [Suspect]
     Active Substance: ACETAMINOPHEN
     Indication: Foetal exposure during pregnancy
  167. PANADOL [Suspect]
     Active Substance: ACETAMINOPHEN
  168. PANADOL [Suspect]
     Active Substance: ACETAMINOPHEN
  169. PANADOL [Suspect]
     Active Substance: ACETAMINOPHEN
  170. ACETAMINOPHEN [Suspect]
     Active Substance: ACETAMINOPHEN
     Indication: Foetal exposure during pregnancy
  171. CHOLECALCIFEROL [Suspect]
     Active Substance: CHOLECALCIFEROL
     Indication: Foetal exposure during pregnancy
  172. CHOLECALCIFEROL [Suspect]
     Active Substance: CHOLECALCIFEROL
  173. CHOLECALCIFEROL [Suspect]
     Active Substance: CHOLECALCIFEROL
  174. CHOLECALCIFEROL [Suspect]
     Active Substance: CHOLECALCIFEROL
  175. TRUXIMA [Suspect]
     Active Substance: RITUXIMAB-ABBS
     Indication: Foetal exposure during pregnancy
  176. TRUXIMA [Suspect]
     Active Substance: RITUXIMAB-ABBS
  177. TRUXIMA [Suspect]
     Active Substance: RITUXIMAB-ABBS
  178. TRUXIMA [Suspect]
     Active Substance: RITUXIMAB-ABBS
  179. STELARA [Suspect]
     Active Substance: USTEKINUMAB
     Indication: Foetal exposure during pregnancy
  180. VOLTAREN [Suspect]
     Active Substance: DICLOFENAC SODIUM
     Indication: Foetal exposure during pregnancy
  181. VOLTAREN [Suspect]
     Active Substance: DICLOFENAC SODIUM
  182. ERENUMAB [Suspect]
     Active Substance: ERENUMAB
     Indication: Foetal exposure during pregnancy
  183. ERENUMAB [Suspect]
     Active Substance: ERENUMAB
     Indication: Foetal exposure during pregnancy
  184. VOLTAROL [Suspect]
     Active Substance: DICLOFENAC SODIUM
     Indication: Foetal exposure during pregnancy
  185. VOLTAROL [Suspect]
     Active Substance: DICLOFENAC SODIUM
  186. VOLTAROL [Suspect]
     Active Substance: DICLOFENAC SODIUM
  187. AZATHIOPRINE [Suspect]
     Active Substance: AZATHIOPRINE
     Indication: Foetal exposure during pregnancy
  188. AZATHIOPRINE [Suspect]
     Active Substance: AZATHIOPRINE
  189. DICLOFENAC [Suspect]
     Active Substance: DICLOFENAC
     Indication: Foetal exposure during pregnancy
  190. DICLOFENAC [Suspect]
     Active Substance: DICLOFENAC
  191. ERENUMAB-AOOE [Suspect]
     Active Substance: ERENUMAB-AOOE
     Indication: Foetal exposure during pregnancy
  192. ERENUMAB-AOOE [Suspect]
     Active Substance: ERENUMAB-AOOE
     Indication: Foetal exposure during pregnancy
  193. DICLOFENAC EPOLAMINE [Suspect]
     Active Substance: DICLOFENAC EPOLAMINE
     Indication: Foetal exposure during pregnancy
  194. DICLOFENAC EPOLAMINE [Suspect]
     Active Substance: DICLOFENAC EPOLAMINE
  195. ATOMOXETINE HYDROCHLORIDE [Suspect]
     Active Substance: ATOMOXETINE HYDROCHLORIDE
     Indication: Foetal exposure during pregnancy
  196. ATOMOXETINE HYDROCHLORIDE [Suspect]
     Active Substance: ATOMOXETINE HYDROCHLORIDE
  197. VITAMIN D3 [Suspect]
     Active Substance: CHOLECALCIFEROL
     Indication: Foetal exposure during pregnancy
  198. VITAMIN D3 [Suspect]
     Active Substance: CHOLECALCIFEROL
  199. METFORMIN HYDROCHLORIDE [Suspect]
     Active Substance: METFORMIN HYDROCHLORIDE
     Indication: Foetal exposure during pregnancy
  200. METFORMIN HYDROCHLORIDE [Suspect]
     Active Substance: METFORMIN HYDROCHLORIDE
  201. ALENDRONATE SODIUM [Suspect]
     Active Substance: ALENDRONATE SODIUM
     Indication: Foetal exposure during pregnancy
  202. ALENDRONATE SODIUM [Suspect]
     Active Substance: ALENDRONATE SODIUM
  203. MEGLUMINE [Suspect]
     Active Substance: MEGLUMINE
     Indication: Foetal exposure during pregnancy
  204. MEGLUMINE [Suspect]
     Active Substance: MEGLUMINE
  205. CELECOXIB [Suspect]
     Active Substance: CELECOXIB
     Indication: Foetal exposure during pregnancy
  206. CELECOXIB [Suspect]
     Active Substance: CELECOXIB
     Indication: Foetal exposure during pregnancy
  207. HYRIMOZ [Suspect]
     Active Substance: ADALIMUMAB-ADAZ
     Indication: Foetal exposure during pregnancy
  208. HYRIMOZ [Suspect]
     Active Substance: ADALIMUMAB-ADAZ
     Indication: Foetal exposure during pregnancy
  209. ATOMOXETINE HYDROCHLORIDE [Suspect]
     Active Substance: ATOMOXETINE HYDROCHLORIDE
     Indication: Foetal exposure during pregnancy
  210. ATOMOXETINE HYDROCHLORIDE [Suspect]
     Active Substance: ATOMOXETINE HYDROCHLORIDE
     Indication: Foetal exposure during pregnancy
  211. LEFLUNOMIDE [Suspect]
     Active Substance: LEFLUNOMIDE
     Indication: Foetal exposure during pregnancy
  212. LEFLUNOMIDE [Suspect]
     Active Substance: LEFLUNOMIDE
     Indication: Foetal exposure during pregnancy
  213. TOPIRAMATE [Suspect]
     Active Substance: TOPIRAMATE
     Indication: Foetal exposure during pregnancy
  214. TOPIRAMATE [Suspect]
     Active Substance: TOPIRAMATE
     Indication: Foetal exposure during pregnancy
  215. GOLD SODIUM THIOMALATE [Suspect]
     Active Substance: GOLD SODIUM THIOMALATE
     Indication: Foetal exposure during pregnancy
  216. GOLD SODIUM THIOMALATE [Suspect]
     Active Substance: GOLD SODIUM THIOMALATE
     Indication: Foetal exposure during pregnancy
  217. VOLTAREN [Suspect]
     Active Substance: DICLOFENAC SODIUM
     Indication: Foetal exposure during pregnancy
  218. VOLTAREN [Suspect]
     Active Substance: DICLOFENAC SODIUM
     Indication: Foetal exposure during pregnancy
  219. ACETAMINOPHEN\TRAMADOL HYDROCHLORIDE [Suspect]
     Active Substance: ACETAMINOPHEN\TRAMADOL HYDROCHLORIDE
     Indication: Foetal exposure during pregnancy
  220. ACETAMINOPHEN\TRAMADOL HYDROCHLORIDE [Suspect]
     Active Substance: ACETAMINOPHEN\TRAMADOL HYDROCHLORIDE
  221. ALENDRONATE SODIUM\CHOLECALCIFEROL [Suspect]
     Active Substance: ALENDRONATE SODIUM\CHOLECALCIFEROL
     Indication: Foetal exposure during pregnancy
  222. ALENDRONATE SODIUM\CHOLECALCIFEROL [Suspect]
     Active Substance: ALENDRONATE SODIUM\CHOLECALCIFEROL
  223. FLUMETHASONE\SALICYLIC ACID [Suspect]
     Active Substance: FLUMETHASONE\SALICYLIC ACID
     Indication: Foetal exposure during pregnancy
  224. FLUMETHASONE\SALICYLIC ACID [Suspect]
     Active Substance: FLUMETHASONE\SALICYLIC ACID
  225. CHOLECALCIFEROL [Suspect]
     Active Substance: CHOLECALCIFEROL
     Indication: Foetal exposure during pregnancy
  226. CHOLECALCIFEROL [Suspect]
     Active Substance: CHOLECALCIFEROL
  227. PHENYLEPHRINE HYDROCHLORIDE\TROPICAMIDE [Suspect]
     Active Substance: PHENYLEPHRINE HYDROCHLORIDE\TROPICAMIDE
     Indication: Foetal exposure during pregnancy
  228. PHENYLEPHRINE HYDROCHLORIDE\TROPICAMIDE [Suspect]
     Active Substance: PHENYLEPHRINE HYDROCHLORIDE\TROPICAMIDE
  229. CANDESARTAN CILEXETIL [Suspect]
     Active Substance: CANDESARTAN CILEXETIL
     Indication: Foetal exposure during pregnancy
  230. HYDROCORTISONE [Suspect]
     Active Substance: HYDROCORTISONE
     Indication: Foetal exposure during pregnancy

REACTIONS (2)
  - Maternal exposure during pregnancy [Unknown]
  - Congenital anomaly [Unknown]
